FAERS Safety Report 5720637-7 (Version None)
Quarter: 2008Q2

REPORT INFORMATION
  Report Type: 
  Country: None (occurrence: None)
  Receive Date: 20080429
  Receipt Date: 20080417
  Transmission Date: 20081010
  Serious: Yes (Other)
  Sender: FDA-Public Use
  Company Number: IE-WYE-G01422108

PATIENT
  Age: 23 Year
  Sex: Male

DRUGS (2)
  1. EFFEXOR XR [Suspect]
     Indication: DEPRESSION
     Dosage: 225 MG FREQUENCY UNKNOWN
     Dates: start: 20070901
  2. EFFEXOR XR [Suspect]
     Dosage: UNKNOWN
     Dates: end: 20080301

REACTIONS (4)
  - DRUG WITHDRAWAL SYNDROME [None]
  - HALLUCINATION, AUDITORY [None]
  - TINNITUS [None]
  - VISUAL DISTURBANCE [None]
